FAERS Safety Report 17252738 (Version 1)
Quarter: 2020Q1

REPORT INFORMATION
  Report Type: Spontaneous
  Country: US (occurrence: US)
  Receive Date: 20200109
  Receipt Date: 20200109
  Transmission Date: 20200409
  Serious: No
  Sender: FDA-Public Use
  Company Number: US-OPTINOSE US, INC-2019OPT000946

PATIENT
  Age: 34 Year
  Sex: Female

DRUGS (3)
  1. XHANCE [Suspect]
     Active Substance: FLUTICASONE PROPIONATE
     Indication: RHINITIS ALLERGIC
     Route: 045
     Dates: start: 201910
  2. XHANCE [Suspect]
     Active Substance: FLUTICASONE PROPIONATE
     Indication: SINUSITIS
  3. XHANCE [Suspect]
     Active Substance: FLUTICASONE PROPIONATE
     Indication: HEADACHE

REACTIONS (2)
  - Adverse drug reaction [Unknown]
  - Product use in unapproved indication [Unknown]
